FAERS Safety Report 12964536 (Version 1)
Quarter: 2016Q4

REPORT INFORMATION
  Report Type: Report from Study
  Country: CA (occurrence: CA)
  Receive Date: 20161122
  Receipt Date: 20161122
  Transmission Date: 20170207
  Serious: Yes (Other)
  Sender: FDA-Public Use
  Company Number: CA-JNJFOC-20161118751

PATIENT
  Age: 17 Year
  Sex: Female
  Weight: 75 kg

DRUGS (3)
  1. REMICADE [Suspect]
     Active Substance: INFLIXIMAB
     Indication: CROHN^S DISEASE
     Dosage: ALSO REPORTED AS 10MG/KG
     Route: 042
     Dates: start: 200905
  2. REMICADE [Suspect]
     Active Substance: INFLIXIMAB
     Indication: CROHN^S DISEASE
     Dosage: 54TH INFUSION
     Route: 042
     Dates: start: 20161111
  3. PURINETHOL [Concomitant]
     Active Substance: MERCAPTOPURINE
     Route: 048

REACTIONS (5)
  - Haematochezia [Unknown]
  - Product use issue [Unknown]
  - Abdominal pain [Unknown]
  - Off label use [Unknown]
  - Frequent bowel movements [Unknown]

NARRATIVE: CASE EVENT DATE: 200905
